FAERS Safety Report 15132947 (Version 1)
Quarter: 2018Q3

REPORT INFORMATION
  Report Type: Spontaneous
  Country: ES (occurrence: ES)
  Receive Date: 20180712
  Receipt Date: 20180712
  Transmission Date: 20181010
  Serious: Yes (Hospitalization)
  Sender: FDA-Public Use
  Company Number: ES-SUN PHARMACEUTICAL INDUSTRIES LTD-2018RR-178041

PATIENT
  Age: 62 Year
  Sex: Female

DRUGS (5)
  1. GEMCITABINE [Suspect]
     Active Substance: GEMCITABINE\GEMCITABINE HYDROCHLORIDE
     Indication: HODGKIN^S DISEASE
     Dosage: SP (GEMBUMENL)
     Route: 065
     Dates: start: 20121130, end: 20130220
  2. MELFALAN (403A) [Suspect]
     Active Substance: MELPHALAN
     Indication: HODGKIN^S DISEASE
     Dosage: SP (GEMBUMEL) ()
     Route: 042
     Dates: start: 20121130, end: 20130220
  3. ARAVA [Suspect]
     Active Substance: LEFLUNOMIDE
     Indication: RHEUMATOID ARTHRITIS
     Dosage: SP ()
     Route: 048
     Dates: start: 20140901, end: 20150201
  4. BUSULFANO (76A) [Suspect]
     Active Substance: BUSULFAN
     Indication: HODGKIN^S DISEASE
     Dosage: SP (GEMBUMEL) ()
     Route: 042
     Dates: start: 20121130, end: 20130220
  5. METOTREXATE [Suspect]
     Active Substance: METHOTREXATE SODIUM
     Indication: RHEUMATOID ARTHRITIS
     Dosage: 7,5 MG DIA ()
     Route: 048
     Dates: start: 20140701, end: 20140901

REACTIONS (1)
  - Myelodysplastic syndrome [Not Recovered/Not Resolved]

NARRATIVE: CASE EVENT DATE: 20150214
